FAERS Safety Report 11026685 (Version 1)
Quarter: 2015Q2

REPORT INFORMATION
  Report Type: Spontaneous
  Country: US (occurrence: US)
  Receive Date: 20150414
  Receipt Date: 20150414
  Transmission Date: 20150821
  Serious: Yes (Other)
  Sender: FDA-Public Use
  Company Number: US-TEVA-553724USA

PATIENT
  Sex: Female

DRUGS (3)
  1. LEVOTHYROXINE [Concomitant]
     Active Substance: LEVOTHYROXINE
  2. VENTOLIN [Concomitant]
     Active Substance: ALBUTEROL SULFATE
  3. PROAIR HFA [Suspect]
     Active Substance: ALBUTEROL SULFATE
     Indication: CHRONIC OBSTRUCTIVE PULMONARY DISEASE
     Route: 055
     Dates: start: 20150312, end: 20150407

REACTIONS (9)
  - Tremor [Unknown]
  - Dyspnoea [Unknown]
  - Throat tightness [Unknown]
  - Asthenia [Unknown]
  - Myocardial infarction [Unknown]
  - Pain in jaw [Unknown]
  - Dizziness [Unknown]
  - Muscle tightness [Unknown]
  - Wheezing [Unknown]
